FAERS Safety Report 12071257 (Version 1)
Quarter: 2016Q1

REPORT INFORMATION
  Report Type: Report from Study
  Country: GB (occurrence: GB)
  Receive Date: 20160211
  Receipt Date: 20160211
  Transmission Date: 20160526
  Serious: Yes (Hospitalization, Other)
  Sender: FDA-Public Use
  Company Number: GB-GILEAD-2016-0196945

PATIENT
  Age: 64 Year
  Sex: Male
  Weight: 64 kg

DRUGS (9)
  1. EMTRICITABINE [Suspect]
     Active Substance: EMTRICITABINE
     Indication: HIV INFECTION
     Dosage: 200 MG, QD
     Route: 048
     Dates: start: 20090205
  2. MORPHINE SULFATE. [Concomitant]
     Active Substance: MORPHINE SULFATE
     Indication: PRODUCT USED FOR UNKNOWN INDICATION
     Dosage: 30 MG, UNK
     Route: 048
     Dates: start: 20141116, end: 20160122
  3. ACICLOVIR [Concomitant]
     Active Substance: ACYCLOVIR
     Indication: HERPES VIRUS INFECTION
     Dosage: 1000 MG, UNK
     Route: 048
     Dates: start: 20141116
  4. AZITHROMYCIN ANHYDROUS. [Concomitant]
     Active Substance: AZITHROMYCIN ANHYDROUS
     Indication: ANTIBIOTIC THERAPY
     Dosage: 108 MG, UNK
     Route: 048
     Dates: start: 20141116
  5. EFAVIRENZ/EMTRICITABINE/TENOFOVIR DISOPROXIL FUMARATE [Suspect]
     Active Substance: EFAVIRENZ\EMTRICITABINE\TENOFOVIR DISOPROXIL FUMARATE
     Indication: HIV INFECTION
     Dosage: 600 MG, QD
     Route: 048
     Dates: start: 20090205
  6. MORPHINE SULFATE. [Concomitant]
     Active Substance: MORPHINE SULFATE
     Dosage: 15 ML, UNK
     Route: 048
     Dates: start: 20141116, end: 20160122
  7. PARACETAMOL [Concomitant]
     Active Substance: ACETAMINOPHEN
     Indication: PAIN
     Dosage: 2000 MG, UNK
     Route: 048
     Dates: start: 20141116, end: 20160105
  8. COTRIMOXAZOLE [Concomitant]
     Active Substance: SULFAMETHOXAZOLE\TRIMETHOPRIM
     Indication: ANTIBIOTIC THERAPY
     Dosage: 1350 MG, UNK
     Route: 048
     Dates: start: 20141116
  9. TENOFOVIR DISOPROXIL FUMARATE. [Suspect]
     Active Substance: TENOFOVIR DISOPROXIL FUMARATE
     Indication: HIV INFECTION
     Dosage: 245 MG, QD
     Route: 048
     Dates: start: 20090205

REACTIONS (6)
  - Gastrooesophageal reflux disease [Recovered/Resolved]
  - Diarrhoea [Recovered/Resolved]
  - Oropharyngeal pain [Recovered/Resolved]
  - Malaise [Recovered/Resolved]
  - Feeding disorder [Recovered/Resolved]
  - Infection [Recovered/Resolved]

NARRATIVE: CASE EVENT DATE: 20151102
